FAERS Safety Report 12882916 (Version 1)
Quarter: 2016Q4

REPORT INFORMATION
  Report Type: Spontaneous
  Country: JP (occurrence: JP)
  Receive Date: 20161025
  Receipt Date: 20161025
  Transmission Date: 20170207
  Serious: Yes (Other)
  Sender: FDA-Public Use
  Company Number: JP-PFIZER INC-2016485203

PATIENT
  Age: 44 Year
  Sex: Female

DRUGS (2)
  1. CARBOPLATIN. [Suspect]
     Active Substance: CARBOPLATIN
     Indication: CARCINOID TUMOUR
     Dosage: UNK, CYCLIC (THREE COURSES)
  2. PACLITAXEL. [Suspect]
     Active Substance: PACLITAXEL
     Indication: CARCINOID TUMOUR
     Dosage: 175 MG/M2, CYCLIC (THREE COURSES)

REACTIONS (3)
  - Ileus [Unknown]
  - Perineal pain [Unknown]
  - Abdominal pain [Unknown]
